FAERS Safety Report 12242050 (Version 1)
Quarter: 2016Q2

REPORT INFORMATION
  Report Type: Spontaneous
  Country: US (occurrence: None)
  Receive Date: 20160405
  Receipt Date: 20160405
  Transmission Date: 20160815
  Serious: Yes (Other)
  Sender: FDA-Public Use
  Company Number: None

PATIENT
  Age: 60 Year
  Sex: Female
  Weight: 54.43 kg

DRUGS (1)
  1. SIMPONI [Suspect]
     Active Substance: GOLIMUMAB
     Indication: RHEUMATOID ARTHRITIS
     Dosage: 50 MG/0.5 ML Q MONTH SC
     Route: 058
     Dates: start: 20160303

REACTIONS (3)
  - Depression [None]
  - Fatigue [None]
  - Depressed mood [None]

NARRATIVE: CASE EVENT DATE: 20160308
